FAERS Safety Report 10099560 (Version 2)
Quarter: 2014Q2

REPORT INFORMATION
  Report Type: Spontaneous
  Country: BR (occurrence: BR)
  Receive Date: 20140423
  Receipt Date: 20140430
  Transmission Date: 20141212
  Serious: Yes (Hospitalization)
  Sender: FDA-Public Use
  Company Number: BR-PFIZER INC-2014111226

PATIENT
  Age: 73 Year
  Sex: Female

DRUGS (7)
  1. ATENOLOL [Suspect]
     Indication: HYPERTENSION
     Dosage: 25 MG, 2X/DAY
     Route: 048
     Dates: start: 2009, end: 201404
  2. BRILINTA [Suspect]
     Indication: MYOCARDIAL INFARCTION
     Dosage: 90 MG, DAILY
     Route: 048
     Dates: start: 201404
  3. LOSARTAN [Concomitant]
     Indication: HYPERTENSION
     Dosage: UNK, DAILY
     Route: 048
     Dates: start: 201404
  4. SUSTRATE [Concomitant]
     Indication: HYPERTENSION
     Dosage: UNK, THREE TIMES A DAY
     Route: 048
     Dates: start: 201404
  5. ASA [Concomitant]
     Indication: MYOCARDIAL INFARCTION
     Dosage: UNK, DAILY
     Route: 048
     Dates: start: 201404
  6. SIMVASTATIN [Concomitant]
     Indication: MYOCARDIAL INFARCTION
     Dosage: UNK, DAILY
     Route: 048
     Dates: start: 201404
  7. CONCOR [Concomitant]
     Indication: MYOCARDIAL INFARCTION
     Dosage: UNK, DAILY
     Route: 048
     Dates: start: 201404

REACTIONS (6)
  - Off label use [Not Recovered/Not Resolved]
  - Myocardial infarction [Recovered/Resolved]
  - Malaise [Not Recovered/Not Resolved]
  - Anxiety [Not Recovered/Not Resolved]
  - Dyspnoea [Not Recovered/Not Resolved]
  - Dyspepsia [Not Recovered/Not Resolved]
